FAERS Safety Report 5551767-0 (Version None)
Quarter: 2007Q4

REPORT INFORMATION
  Report Type: 
  Country: None (occurrence: None)
  Receive Date: 20071212
  Receipt Date: 20071130
  Transmission Date: 20080405
  Serious: Yes (Other)
  Sender: FDA-Public Use
  Company Number: US-ELI_LILLY_AND_COMPANY-US200712000522

PATIENT
  Age: 37 Year
  Sex: Female

DRUGS (4)
  1. CYMBALTA [Suspect]
     Dosage: 30 MG, UNK
     Dates: start: 20070918
  2. CYMBALTA [Suspect]
     Dosage: 60 MG, UNK
     Dates: end: 20070928
  3. LAMICTAL [Concomitant]
  4. DEPAKOTE [Concomitant]

REACTIONS (2)
  - ABDOMINAL PAIN UPPER [None]
  - ASCITES [None]
